FAERS Safety Report 24263884 (Version 2)
Quarter: 2025Q2

REPORT INFORMATION
  Report Type: Report from Study
  Country: US (occurrence: US)
  Receive Date: 20240829
  Receipt Date: 20250509
  Transmission Date: 20250717
  Serious: Yes (Hospitalization)
  Sender: BOEHRINGER INGELHEIM
  Company Number: US-BoehringerIngelheim-2024-BI-048393

PATIENT
  Age: 79 Year
  Sex: Male

DRUGS (2)
  1. OFEV [Suspect]
     Active Substance: NINTEDANIB
     Indication: Pulmonary fibrosis
     Dates: start: 202407
  2. OFEV [Suspect]
     Active Substance: NINTEDANIB
     Dates: start: 202407

REACTIONS (3)
  - Cardiac disorder [Unknown]
  - Cough [Unknown]
  - Diarrhoea [Not Recovered/Not Resolved]
